FAERS Safety Report 8250944-8 (Version None)
Quarter: 2012Q2

REPORT INFORMATION
  Report Type: 
  Country: None (occurrence: None)
  Receive Date: 20120402
  Receipt Date: 20120321
  Transmission Date: 20120825
  Serious: Yes (Other)
  Sender: FDA-Public Use
  Company Number: US-SANOFI-AVENTIS-2012SA020276

PATIENT
  Age: 35 Year
  Sex: Female

DRUGS (4)
  1. ALLEGRA-D, 12 HR [Suspect]
     Dates: start: 20030101
  2. ZYRTEC [Concomitant]
  3. CLARITIN [Concomitant]
  4. ALLEGRA D 24 HOUR [Suspect]
     Route: 048

REACTIONS (5)
  - PNEUMONIA [None]
  - DRUG INEFFECTIVE [None]
  - BRONCHITIS [None]
  - MALAISE [None]
  - INSOMNIA [None]
